FAERS Safety Report 7277461-6 (Version None)
Quarter: 2011Q1

REPORT INFORMATION
  Report Type: 
  Country: None (occurrence: None)
  Receive Date: 20110207
  Receipt Date: 20110201
  Transmission Date: 20110831
  Serious: Yes (Hospitalization)
  Sender: FDA-Public Use
  Company Number: US-BRISTOL-MYERS SQUIBB COMPANY-15523129

PATIENT
  Age: 68 Year
  Sex: Male
  Weight: 100 kg

DRUGS (5)
  1. TISSUE PLASMINOGEN ACTIVATOR [Suspect]
  2. ERBITUX [Suspect]
     Indication: OESOPHAGEAL ADENOCARCINOMA
     Dosage: 6 CYCLE:3743MG(TOTAL);LAST DOSE ON 11JAN11
     Dates: start: 20101207
  3. CISPLATIN [Suspect]
     Indication: OESOPHAGEAL ADENOCARCINOMA
     Dosage: 6 CYCLE:342MG(TOTAL);LAST DOSE ON 11JAN11
     Dates: start: 20101207
  4. INTEGRILIN [Suspect]
  5. TAXOL [Suspect]
     Indication: OESOPHAGEAL ADENOCARCINOMA
     Dosage: 6 CYCLE:678MG(TOTAL);LAST DOSE ON 11JAN11
     Dates: start: 20101207

REACTIONS (3)
  - PLATELET COUNT DECREASED [None]
  - ARTERIAL THROMBOSIS LIMB [None]
  - NEUTROPHIL COUNT DECREASED [None]
